FAERS Safety Report 18148869 (Version 2)
Quarter: 2020Q4

REPORT INFORMATION
  Report Type: Report from Study
  Country: US (occurrence: US)
  Receive Date: 20200813
  Receipt Date: 20201007
  Transmission Date: 20210113
  Serious: No
  Sender: FDA-Public Use
  Company Number: NVSC2020US224104

PATIENT
  Sex: Male

DRUGS (1)
  1. COSENTYX [Suspect]
     Active Substance: SECUKINUMAB
     Indication: PSORIASIS
     Dosage: 300 MG, OTHER (EVERY WEEK X 5 WEEKS THEN EVERY 4 WEEKS)
     Route: 058
     Dates: start: 20200718

REACTIONS (1)
  - Influenza like illness [Recovered/Resolved]
